FAERS Safety Report 9341236 (Version 3)
Quarter: 2013Q3

REPORT INFORMATION
  Report Type: Spontaneous
  Country: US (occurrence: US)
  Receive Date: 20130611
  Receipt Date: 20130717
  Transmission Date: 20140515
  Serious: Yes (Life-Threatening, Hospitalization, Other)
  Sender: FDA-Public Use
  Company Number: US-009507513-1306USA001670

PATIENT
  Age: 24 Year
  Sex: Female
  Weight: 101.59 kg

DRUGS (15)
  1. JANUMET [Suspect]
     Indication: DIABETES MELLITUS
     Dosage: 2 TABLETS; 50/500 DOSAGE FORM
     Route: 048
     Dates: start: 20130426, end: 20130530
  2. GLIMEPIRIDE [Concomitant]
     Dosage: 4 MG, QD
     Route: 048
     Dates: start: 20120914
  3. OMEPRAZOLE [Concomitant]
     Dosage: 40 MG, QD, CPDR
     Route: 048
     Dates: start: 20120521
  4. VOLTAREN [Concomitant]
     Dosage: UNK
  5. COLCRYS [Concomitant]
     Route: 048
  6. OMEGA-3 MARINE TRIGLYCERIDES [Concomitant]
     Route: 048
  7. CALCIUM (UNSPECIFIED) [Concomitant]
     Route: 048
  8. MAGNESIUM (UNSPECIFIED) [Concomitant]
     Route: 048
  9. CYANOCOBALAMIN [Concomitant]
     Route: 048
  10. CHOLECALCIFEROL [Concomitant]
     Dosage: 1 DF, QW, 50000 UNIT CAPS
     Route: 048
  11. GLUCOPHAGE [Concomitant]
     Indication: DIABETES MELLITUS
     Dosage: 500 MG, UNK
     Route: 048
     Dates: start: 20130530
  12. DICLOFENAC SODIUM [Concomitant]
     Indication: BACK PAIN
     Dosage: 50 MG, QD, TBEC
     Dates: start: 20130426
  13. CORTICOSTEROIDS (UNSPECIFIED) [Concomitant]
     Dosage: 60 MG, UNK
  14. CORTICOSTEROIDS (UNSPECIFIED) [Concomitant]
     Dosage: 30 MG, UNK
  15. KRYSTEXXA [Concomitant]

REACTIONS (14)
  - Dyspnoea [Recovered/Resolved]
  - Chest discomfort [Recovered/Resolved]
  - Urticaria [Recovered/Resolved]
  - Pruritus generalised [Unknown]
  - Feeling abnormal [Unknown]
  - Blood pressure increased [Unknown]
  - Heart rate increased [Unknown]
  - Psychotic disorder [Unknown]
  - Dyspnoea [Recovered/Resolved]
  - Pruritus generalised [Recovered/Resolved]
  - Chest discomfort [Recovered/Resolved]
  - Urticaria [Recovered/Resolved]
  - Hypersensitivity [Unknown]
  - Infusion related reaction [Unknown]
